FAERS Safety Report 24014466 (Version 1)
Quarter: 2024Q2

REPORT INFORMATION
  Report Type: Spontaneous
  Country: GB (occurrence: GB)
  Receive Date: 20240626
  Receipt Date: 20240626
  Transmission Date: 20240715
  Serious: Yes (Life-Threatening, Hospitalization, Other)
  Sender: FDA-Public Use
  Company Number: GB-SUN PHARMACEUTICAL INDUSTRIES LTD-2024R1-452378

PATIENT
  Sex: Male
  Weight: 60 kg

DRUGS (1)
  1. VALPROATE SODIUM [Suspect]
     Active Substance: VALPROATE SODIUM
     Indication: Product used for unknown indication
     Dosage: 200 MILLIGRAM
     Route: 065

REACTIONS (6)
  - Pneumonia aspiration [Unknown]
  - Hypoxia [Unknown]
  - Acute respiratory distress syndrome [Unknown]
  - Brain oedema [Unknown]
  - Toxicity to various agents [Unknown]
  - Overdose [Unknown]
